FAERS Safety Report 10242252 (Version 1)
Quarter: 2014Q2

REPORT INFORMATION
  Report Type: Spontaneous
  Country: DE (occurrence: DE)
  Receive Date: 20140617
  Receipt Date: 20140617
  Transmission Date: 20141212
  Serious: Yes (Other)
  Sender: FDA-Public Use
  Company Number: DE-TEVA-488185GER

PATIENT
  Sex: 0

DRUGS (2)
  1. DICLOFENAC [Suspect]
     Route: 048
  2. IBUPROFEN [Interacting]
     Indication: HEADACHE
     Route: 048

REACTIONS (5)
  - Altered state of consciousness [Unknown]
  - Altered state of consciousness [Unknown]
  - Illusion [Unknown]
  - Drug interaction [Unknown]
  - Alcohol interaction [Unknown]
